FAERS Safety Report 16029057 (Version 1)
Quarter: 2019Q2

REPORT INFORMATION
  Report Type: Spontaneous
  Country: US (occurrence: US)
  Receive Date: 20190302
  Receipt Date: 20190302
  Transmission Date: 20190711
  Serious: Yes (Life-Threatening, Hospitalization, Disabling, Other)
  Sender: FDA-Public Use
  Company Number: None

PATIENT
  Age: 39 Year
  Sex: Male
  Weight: 118.35 kg

DRUGS (2)
  1. AFO [Concomitant]
  2. LATUDA [Suspect]
     Active Substance: LURASIDONE HYDROCHLORIDE
     Indication: BIPOLAR DISORDER
     Dosage: ?          QUANTITY:1 TABLET(S);?
     Route: 048
     Dates: start: 20160701, end: 20171208

REACTIONS (4)
  - Peroneal nerve palsy [None]
  - Unevaluable event [None]
  - Rhabdomyolysis [None]
  - Compartment syndrome [None]

NARRATIVE: CASE EVENT DATE: 20171208
